FAERS Safety Report 5767013-9 (Version None)
Quarter: 2008Q2

REPORT INFORMATION
  Report Type: 
  Country: None (occurrence: None)
  Receive Date: 20080612
  Receipt Date: 20080602
  Transmission Date: 20081010
  Serious: Yes (Hospitalization, Other)
  Sender: FDA-Public Use
  Company Number: DE-JNJFOC-20080406703

PATIENT
  Sex: Male
  Weight: 36.8 kg

DRUGS (3)
  1. CONCERTA [Suspect]
     Indication: ATTENTION DEFICIT/HYPERACTIVITY DISORDER
     Route: 048
  2. MEDIKINET [Concomitant]
     Route: 048
  3. ANTIBIOTIC DRUG [Concomitant]

REACTIONS (3)
  - CHILLS [None]
  - CONVULSION [None]
  - PANIC ATTACK [None]
